FAERS Safety Report 5385713-X (Version None)
Quarter: 2007Q3

REPORT INFORMATION
  Report Type: 
  Country: None (occurrence: None)
  Receive Date: 20070712
  Receipt Date: 20070711
  Transmission Date: 20080115
  Serious: Yes (Other)
  Sender: FDA-Public Use
  Company Number: US-BRISTOL-MYERS SQUIBB COMPANY-13814827

PATIENT
  Age: 42 Year
  Sex: Male
  Weight: 94 kg

DRUGS (6)
  1. ORENCIA [Suspect]
     Indication: RHEUMATOID ARTHRITIS
     Route: 042
     Dates: start: 20060801
  2. SULINDAC [Concomitant]
  3. TOPAMAX [Concomitant]
  4. PLAQUENIL [Concomitant]
  5. NEXIUM [Concomitant]
  6. ARAVA [Concomitant]

REACTIONS (2)
  - DRUG INEFFECTIVE [None]
  - NEUROPATHY PERIPHERAL [None]
